FAERS Safety Report 17621321 (Version 1)
Quarter: 2020Q2

REPORT INFORMATION
  Report Type: Report from Study
  Country: US (occurrence: US)
  Receive Date: 20200403
  Receipt Date: 20200403
  Transmission Date: 20200713
  Serious: No
  Sender: FDA-Public Use
  Company Number: PHHY2019US003650

PATIENT
  Age: 48 Year
  Sex: Male
  Weight: 62.95 kg

DRUGS (4)
  1. ZITHROMAX [Concomitant]
     Active Substance: AZITHROMYCIN DIHYDRATE
     Indication: MYCOBACTERIUM ABSCESSUS INFECTION
     Dosage: 500 MG, UNK
     Route: 048
     Dates: start: 20181116
  2. LAMPRENE [Suspect]
     Active Substance: CLOFAZIMINE
     Indication: MYCOBACTERIUM ABSCESSUS INFECTION
     Dosage: 100 MG, QD
     Route: 048
     Dates: start: 20181130, end: 20181201
  3. AMIKACIN. [Concomitant]
     Active Substance: AMIKACIN
     Indication: MYCOBACTERIUM ABSCESSUS INFECTION
     Dosage: 1500 MG, UNK
     Route: 041
     Dates: start: 20180711, end: 20181218
  4. LAMPRENE [Suspect]
     Active Substance: CLOFAZIMINE
     Dosage: UNK
     Route: 048
     Dates: start: 20181203

REACTIONS (4)
  - Diarrhoea [Recovered/Resolved]
  - Tinnitus [Not Recovered/Not Resolved]
  - Nausea [Recovered/Resolved]
  - Nausea [Recovered/Resolved]

NARRATIVE: CASE EVENT DATE: 20181201
